FAERS Safety Report 7609973-7 (Version None)
Quarter: 2011Q3

REPORT INFORMATION
  Report Type: 
  Country: None (occurrence: None)
  Receive Date: 20110714
  Receipt Date: 20110708
  Transmission Date: 20111222
  Serious: Yes (Hospitalization)
  Sender: FDA-Public Use
  Company Number: FR-MERCK-1107USA01745

PATIENT
  Age: 77 Year
  Sex: Female
  Weight: 65 kg

DRUGS (13)
  1. ACETAMINOPHEN [Concomitant]
     Route: 065
  2. RABEPRAZOLE SODIUM [Concomitant]
     Route: 048
  3. BISOPROLOL FUMARATE AND HYDROCHLOROTHIAZIDE [Concomitant]
     Indication: HYPERTENSION
     Route: 048
     Dates: end: 20110314
  4. LORAZEPAM [Concomitant]
     Route: 065
  5. AZILECT [Suspect]
     Indication: PARKINSON'S DISEASE
     Route: 048
     Dates: start: 20110217
  6. FIXICAL [Concomitant]
     Route: 065
  7. METEOSPASMYL (ALVERINE CITRATE (+) SIMETHICONE) [Concomitant]
     Route: 065
  8. BONIVA [Suspect]
     Route: 048
     Dates: end: 20110314
  9. SINEMET [Suspect]
     Indication: PARKINSON'S DISEASE
     Route: 048
  10. MOTILIUM [Concomitant]
     Route: 048
     Dates: end: 20110314
  11. FENOFIBRATE [Concomitant]
     Indication: HYPERCHOLESTEROLAEMIA
     Route: 048
     Dates: end: 20110314
  12. SERMION [Concomitant]
     Route: 065
  13. NORMACOL (STERCULIA) [Concomitant]
     Route: 065

REACTIONS (1)
  - ATRIAL FIBRILLATION [None]
